FAERS Safety Report 13156289 (Version 5)
Quarter: 2017Q1

REPORT INFORMATION
  Report Type: Report from Study
  Country: BE (occurrence: BE)
  Receive Date: 20170126
  Receipt Date: 20170328
  Transmission Date: 20170428
  Serious: Yes (Hospitalization)
  Sender: FDA-Public Use
  Company Number: BE-PFIZER INC-2017030537

PATIENT
  Age: 69 Year
  Sex: Female
  Weight: 56 kg

DRUGS (11)
  1. ZINACEF [Concomitant]
     Active Substance: CEFUROXIME SODIUM
     Indication: URINARY TRACT INFECTION
     Dosage: UNK
     Dates: start: 201701, end: 201701
  2. ZINNAT [Concomitant]
     Active Substance: CEFUROXIME AXETIL
     Indication: URINARY TRACT INFECTION
     Dosage: UNK
     Dates: start: 201701, end: 201701
  3. ASAFLOW [Concomitant]
     Active Substance: ASPIRIN
     Indication: THROMBOSIS PROPHYLAXIS
     Dosage: UNK
     Dates: start: 201403
  4. CLEXANE [Concomitant]
     Active Substance: ENOXAPARIN SODIUM
     Indication: THROMBOSIS PROPHYLAXIS
     Dosage: UNK
     Dates: start: 201701, end: 201701
  5. SUNITINIB MALATE. [Suspect]
     Active Substance: SUNITINIB MALATE
     Dosage: 50 MG, 4 WEEKS ON/6 WEEKS OFF
     Dates: start: 201701
  6. COVERSYL [Concomitant]
     Active Substance: PERINDOPRIL
     Indication: HYPERTENSION
     Dosage: UNK
  7. UNI DIAMICRON [Concomitant]
     Active Substance: GLICLAZIDE
     Indication: DIABETES MELLITUS
     Dosage: UNK
     Dates: start: 201403
  8. MOXONIDINE [Concomitant]
     Active Substance: MOXONIDINE
     Indication: HYPERTENSION
     Dosage: UNK
  9. NOBITEN [Concomitant]
     Active Substance: NEBIVOLOL
     Indication: SINOATRIAL BLOCK
     Dosage: UNK
     Dates: start: 201403
  10. SIMVASTATINE [Concomitant]
     Active Substance: SIMVASTATIN
     Indication: HYPERCHOLESTEROLAEMIA
     Dosage: UNK
  11. TILDIEM [Concomitant]
     Active Substance: DILTIAZEM HYDROCHLORIDE
     Indication: HYPERTENSION
     Dosage: UNK

REACTIONS (2)
  - General physical condition abnormal [Recovered/Resolved]
  - Urinary tract infection [Recovered/Resolved]

NARRATIVE: CASE EVENT DATE: 20170116
